FAERS Safety Report 14871558 (Version 2)
Quarter: 2018Q2

REPORT INFORMATION
  Report Type: Spontaneous
  Country: US (occurrence: US)
  Receive Date: 20180509
  Receipt Date: 20180509
  Transmission Date: 20180711
  Serious: Yes (Other)
  Sender: FDA-Public Use
  Company Number: US-CELGENEUS-USA-20180500721

PATIENT
  Sex: Female

DRUGS (1)
  1. OTEZLA [Suspect]
     Active Substance: APREMILAST
     Indication: PSORIASIS
     Dosage: 30MG BID
     Route: 048
     Dates: start: 20180413

REACTIONS (3)
  - Staphylococcal skin infection [Unknown]
  - Psoriasis [Unknown]
  - Rheumatic fever [Unknown]
